FAERS Safety Report 25422122 (Version 1)
Quarter: 2025Q2

REPORT INFORMATION
  Report Type: Spontaneous
  Country: US (occurrence: US)
  Receive Date: 20250611
  Receipt Date: 20250611
  Transmission Date: 20250717
  Serious: No
  Sender: Unknown Manufacturer
  Company Number: US-KINIKSA PHARMACEUTICALS LTD.-2025KPU001491

PATIENT
  Age: 75 Year
  Sex: Female

DRUGS (1)
  1. ARCALYST [Suspect]
     Active Substance: RILONACEPT
     Indication: Pericarditis
     Dosage: 160 MILLIGRAM, QW
     Route: 058
     Dates: start: 20250309

REACTIONS (7)
  - Liquid product physical issue [Unknown]
  - Liquid product physical issue [Unknown]
  - Product dose omission issue [Recovered/Resolved]
  - Injection site mass [Unknown]
  - Injection site pain [Unknown]
  - Injection site haemorrhage [Unknown]
  - Cough [Not Recovered/Not Resolved]

NARRATIVE: CASE EVENT DATE: 20250301
